FAERS Safety Report 6046451-3 (Version None)
Quarter: 2009Q1

REPORT INFORMATION
  Report Type: 
  Country: None (occurrence: None)
  Receive Date: 20090121
  Receipt Date: 20090121
  Transmission Date: 20090719
  Serious: Yes (Hospitalization)
  Sender: FDA-Public Use
  Company Number: None

PATIENT
  Age: 35 Year
  Sex: Female
  Weight: 58.9676 kg

DRUGS (2)
  1. YASMIN [Suspect]
     Indication: OVARIAN CYST
     Dosage: 3 MG 1/DAY PO
     Route: 048
     Dates: start: 20080315, end: 20080719
  2. OCELLA 3 MG TABLETS BARR LABORATORIES [Suspect]
     Indication: OVARIAN CYST
     Dosage: 3 MG 1/DAY PO
     Route: 048
     Dates: start: 20080719, end: 20081219

REACTIONS (2)
  - EXTRASYSTOLES [None]
  - VENTRICULAR EXTRASYSTOLES [None]
